FAERS Safety Report 23122546 (Version 4)
Quarter: 2024Q1

REPORT INFORMATION
  Report Type: Spontaneous
  Country: JP (occurrence: JP)
  Receive Date: 20231030
  Receipt Date: 20240222
  Transmission Date: 20240410
  Serious: Yes (Death, Life-Threatening)
  Sender: FDA-Public Use
  Company Number: JP-NBI-BJ202317973

PATIENT
  Age: 84 Year
  Sex: Female

DRUGS (3)
  1. SPEVIGO [Suspect]
     Active Substance: SPESOLIMAB-SBZO
     Indication: Pustular psoriasis
     Route: 041
     Dates: start: 20230815, end: 20230815
  2. SPEVIGO [Suspect]
     Active Substance: SPESOLIMAB-SBZO
     Route: 041
     Dates: start: 20230921, end: 20230921
  3. BIMZELX [Concomitant]
     Active Substance: BIMEKIZUMAB-BKZX
     Indication: Pustular psoriasis
     Route: 058

REACTIONS (1)
  - Pleural effusion [Fatal]

NARRATIVE: CASE EVENT DATE: 20230801
